FAERS Safety Report 12611460 (Version 4)
Quarter: 2019Q1

REPORT INFORMATION
  Report Type: Spontaneous
  Country: PT (occurrence: PT)
  Receive Date: 20160801
  Receipt Date: 20190103
  Transmission Date: 20190417
  Serious: Yes (Other)
  Sender: FDA-Public Use
  Company Number: PT-PFIZER INC-2016369008

PATIENT
  Age: 53 Year
  Sex: Female

DRUGS (12)
  1. SERTRALINE [Interacting]
     Active Substance: SERTRALINE HYDROCHLORIDE
     Dosage: 200 MG, DAILY
     Dates: start: 201411
  2. RISPERIDONE. [Interacting]
     Active Substance: RISPERIDONE
     Dosage: 4 MG, DAILY
  3. ATROPINE. [Concomitant]
     Active Substance: ATROPINE
     Dosage: 0.5 MG, UNK
  4. SERTRALINE [Suspect]
     Active Substance: SERTRALINE HYDROCHLORIDE
     Indication: MAJOR DEPRESSION
     Dosage: 200 MG, DAILY
  5. ATROPINE. [Concomitant]
     Active Substance: ATROPINE
     Dosage: 0.5 MG, UNK
  6. SUCCINYLCHOLINE [Concomitant]
     Active Substance: SUCCINYLCHOLINE
     Dosage: 55 MG, UNK
  7. RISPERIDONE. [Interacting]
     Active Substance: RISPERIDONE
     Dosage: 2 MG, DAILY
     Dates: start: 201411
  8. RISPERIDONE. [Interacting]
     Active Substance: RISPERIDONE
     Indication: MAJOR DEPRESSION
     Dosage: 2 MG, DAILY
  9. BUPROPION. [Interacting]
     Active Substance: BUPROPION
     Indication: MAJOR DEPRESSION
     Dosage: 300 MG, DAILY
  10. THIOPENTAL [Concomitant]
     Active Substance: THIOPENTAL
     Dosage: 175 MG, UNK
  11. THIOPENTAL [Concomitant]
     Active Substance: THIOPENTAL
     Dosage: 275 MG, UNK
  12. SUCCINYLCHOLINE [Concomitant]
     Active Substance: SUCCINYLCHOLINE
     Dosage: 25 MG, UNK

REACTIONS (2)
  - Drug interaction [Recovered/Resolved]
  - Generalised tonic-clonic seizure [Recovered/Resolved]
